FAERS Safety Report 6733479-0 (Version None)
Quarter: 2010Q2

REPORT INFORMATION
  Report Type: 
  Country: None (occurrence: None)
  Receive Date: 20100520
  Receipt Date: 20100511
  Transmission Date: 20101027
  Serious: Yes (Other)
  Sender: FDA-Public Use
  Company Number: PHHY2010US27259

PATIENT
  Sex: Male
  Weight: 80.726 kg

DRUGS (7)
  1. EXJADE [Suspect]
     Dosage: 500 MG
     Route: 048
     Dates: start: 20080601, end: 20091101
  2. FOLIC ACID [Concomitant]
     Dosage: ONCE A DAY
  3. NAMENDA [Concomitant]
     Dosage: 5 MG, QD
  4. VITAMIN D [Concomitant]
  5. CITALOPRAM HYDROBROMIDE [Concomitant]
     Dosage: 10 UNK, UNK
  6. AMOXICILLIN [Concomitant]
     Dosage: 500 MG
  7. FERRITIN 330 [Concomitant]

REACTIONS (3)
  - DEMENTIA [None]
  - MYELODYSPLASTIC SYNDROME [None]
  - VOMITING [None]
